FAERS Safety Report 5217617-7 (Version None)
Quarter: 2007Q1

REPORT INFORMATION
  Report Type: 
  Country: None (occurrence: None)
  Receive Date: 20070124
  Receipt Date: 20060519
  Transmission Date: 20070707
  Serious: No
  Sender: FDA-Public Use
  Company Number: US-GLAXOSMITHKLINE-A0606341A

PATIENT
  Age: 42 Year
  Sex: Female

DRUGS (4)
  1. PAXIL [Suspect]
     Indication: MAJOR DEPRESSION
     Dosage: 25MG PER DAY
     Route: 048
     Dates: start: 20060201
  2. XANAX [Concomitant]
  3. PRILOSEC [Concomitant]
  4. NUVARING [Concomitant]

REACTIONS (2)
  - NAUSEA [None]
  - SINUSITIS [None]
